FAERS Safety Report 14554048 (Version 1)
Quarter: 2018Q1

REPORT INFORMATION
  Report Type: Other
  Country: None (occurrence: AF)
  Receive Date: 20180220
  Receipt Date: 20180220
  Transmission Date: 20180509
  Serious: Yes (Other)
  Sender: FDA-Public Use
  Company Number: AF-POPULATION COUNCIL, INC.-2042310

PATIENT
  Age: 25 Year
  Sex: Female

DRUGS (2)
  1. RIFAMPIN. [Suspect]
     Active Substance: RIFAMPIN
     Dates: start: 201701
  2. JADELLE [Suspect]
     Active Substance: LEVONORGESTREL
     Indication: CONTRACEPTION
     Route: 059
     Dates: start: 20170602, end: 20180102

REACTIONS (5)
  - Labelled drug-drug interaction medication error [None]
  - Pregnancy with implant contraceptive [None]
  - Contraindicated product administered [None]
  - Brucellosis [None]
  - Off label use [None]

NARRATIVE: CASE EVENT DATE: 2017
